FAERS Safety Report 5986148-9 (Version None)
Quarter: 2008Q4

REPORT INFORMATION
  Report Type: 
  Country: None (occurrence: None)
  Receive Date: 20081205
  Receipt Date: 20081205
  Transmission Date: 20090506
  Serious: Yes (Hospitalization)
  Sender: FDA-Public Use
  Company Number: None

PATIENT
  Sex: Female
  Weight: 81.6475 kg

DRUGS (1)
  1. PERCOCET [Suspect]
     Indication: INSOMNIA
     Dosage: ONCE
     Dates: start: 20080928, end: 20080928

REACTIONS (6)
  - ABNORMAL DREAMS [None]
  - DELIRIUM [None]
  - DELUSION [None]
  - HYPOAESTHESIA [None]
  - PSYCHOTIC DISORDER [None]
  - THINKING ABNORMAL [None]
